FAERS Safety Report 23735673 (Version 1)
Quarter: 2024Q2

REPORT INFORMATION
  Report Type: Report from Study
  Country: IT (occurrence: IT)
  Receive Date: 20240412
  Receipt Date: 20240412
  Transmission Date: 20240716
  Serious: Yes (Life-Threatening, Hospitalization)
  Sender: FDA-Public Use
  Company Number: None

PATIENT
  Age: 58 Year
  Sex: Female
  Weight: 65 kg

DRUGS (1)
  1. CAPECITABINE [Suspect]
     Active Substance: CAPECITABINE
     Indication: Colon cancer
     Dosage: 1250 MG/M2 2/DAY FOR 14 DAYS WITH AN INTERVAL OF 1 WEEK, 2ND CYCLE
     Dates: start: 20240119, end: 20240223

REACTIONS (4)
  - Herpes simplex encephalitis [Recovering/Resolving]
  - Pancytopenia [Recovering/Resolving]
  - Septic shock [Recovering/Resolving]
  - Condition aggravated [Recovering/Resolving]

NARRATIVE: CASE EVENT DATE: 20240225
